FAERS Safety Report 9427305 (Version 1)
Quarter: 2013Q3

REPORT INFORMATION
  Report Type: Spontaneous
  Country: US (occurrence: None)
  Receive Date: 20130729
  Receipt Date: 20130729
  Transmission Date: 20140515
  Serious: No
  Sender: FDA-Public Use
  Company Number: None

PATIENT
  Age: 74 Year
  Sex: Male
  Weight: 76.66 kg

DRUGS (7)
  1. ZANTAC (RANITIDINE) [Suspect]
     Indication: HEPATIC ENZYME INCREASED
     Route: 048
     Dates: start: 2009, end: 2011
  2. LISINOPRIL [Concomitant]
  3. XANAX [Concomitant]
  4. GENZYME 10 [Concomitant]
  5. PROBIOTIC [Concomitant]
  6. VIT D3 [Concomitant]
  7. MAGNESIUM [Concomitant]

REACTIONS (1)
  - Hepatic enzyme increased [None]
